FAERS Safety Report 25472795 (Version 2)
Quarter: 2025Q3

REPORT INFORMATION
  Report Type: Spontaneous
  Country: EU (occurrence: EU)
  Receive Date: 20250624
  Receipt Date: 20250718
  Transmission Date: 20251021
  Serious: Yes (Other)
  Sender: TEVA
  Company Number: EU-TEVA-VS-3195648

PATIENT
  Age: 65 Year
  Sex: Male

DRUGS (7)
  1. GEMCITABINE [Suspect]
     Active Substance: GEMCITABINE
     Indication: Angiosarcoma
     Route: 065
  2. NIVOLUMAB [Suspect]
     Active Substance: NIVOLUMAB
     Indication: Angiosarcoma
     Route: 065
  3. NIVOLUMAB [Suspect]
     Active Substance: NIVOLUMAB
     Indication: Angiosarcoma
     Route: 065
  4. NELVUTAMIG [Suspect]
     Active Substance: NELVUTAMIG
     Indication: Angiosarcoma
     Route: 065
  5. NELVUTAMIG [Suspect]
     Active Substance: NELVUTAMIG
     Indication: Angiosarcoma
     Route: 065
  6. DACARBAZINE [Suspect]
     Active Substance: DACARBAZINE
     Indication: Angiosarcoma
     Route: 065
  7. DACARBAZINE [Suspect]
     Active Substance: DACARBAZINE
     Indication: Angiosarcoma
     Route: 065

REACTIONS (2)
  - Pemphigoid [Recovering/Resolving]
  - Drug ineffective [Unknown]
